FAERS Safety Report 19946702 (Version 1)
Quarter: 2021Q4

REPORT INFORMATION
  Report Type: Spontaneous
  Country: US (occurrence: US)
  Receive Date: 20211013
  Receipt Date: 20211013
  Transmission Date: 20220303
  Serious: No
  Sender: FDA-Public Use
  Company Number: US-SA-SAC20211008000372

PATIENT
  Age: 74 Year
  Sex: Female

DRUGS (6)
  1. KEVZARA [Suspect]
     Active Substance: SARILUMAB
     Dosage: 200 MG, QOW
     Route: 058
     Dates: start: 202103
  2. CALCIUM [Suspect]
     Active Substance: CALCIUM
     Dosage: 500 MG
  3. FOLIC ACID [Suspect]
     Active Substance: FOLIC ACID
     Dosage: 800 MG
  4. METHOTREXATE [Suspect]
     Active Substance: METHOTREXATE
     Dosage: 2.5 MG
  5. PLAQUENIL [Suspect]
     Active Substance: HYDROXYCHLOROQUINE SULFATE
     Dosage: 200 MG
  6. ASCORBIC ACID [Suspect]
     Active Substance: ASCORBIC ACID
     Dosage: 1000 MG

REACTIONS (4)
  - Arthralgia [Unknown]
  - Loss of personal independence in daily activities [Unknown]
  - Gait disturbance [Unknown]
  - Drug ineffective [Unknown]
